FAERS Safety Report 24424578 (Version 1)
Quarter: 2024Q4

REPORT INFORMATION
  Report Type: Spontaneous
  Country: DE (occurrence: DE)
  Receive Date: 20241010
  Receipt Date: 20241010
  Transmission Date: 20250115
  Serious: Yes (Hospitalization)
  Sender: IPSEN
  Company Number: DE-IPSEN Group, Research and Development-2024-05193

PATIENT
  Age: 36 Year
  Sex: Female
  Weight: 82 kg

DRUGS (1)
  1. BOTULINUM TOXIN TYPE A [Suspect]
     Active Substance: BOTULINUM TOXIN TYPE A
     Indication: Skin cosmetic procedure
     Route: 050
     Dates: start: 20240106, end: 20240106

REACTIONS (2)
  - Haemorrhage [Unknown]
  - Exposure during pregnancy [Unknown]

NARRATIVE: CASE EVENT DATE: 20240106
